FAERS Safety Report 13815702 (Version 1)
Quarter: 2017Q3

REPORT INFORMATION
  Report Type: Spontaneous
  Country: US (occurrence: US)
  Receive Date: 20170731
  Receipt Date: 20170731
  Transmission Date: 20171127
  Serious: No
  Sender: FDA-Public Use
  Company Number: US-GLENMARK PHARMACEUTICALS-2016GMK024084

PATIENT

DRUGS (2)
  1. MUPIROCIN. [Suspect]
     Active Substance: MUPIROCIN
     Indication: ECZEMA
  2. MUPIROCIN. [Suspect]
     Active Substance: MUPIROCIN
     Indication: ACNE
     Dosage: UNK
     Route: 061
     Dates: start: 20160810, end: 201608

REACTIONS (3)
  - Rash [Recovered/Resolved]
  - Product use in unapproved indication [Unknown]
  - Drug administered to patient of inappropriate age [Unknown]

NARRATIVE: CASE EVENT DATE: 20160822
